FAERS Safety Report 10173840 (Version 1)
Quarter: 2014Q2

REPORT INFORMATION
  Report Type: Spontaneous
  Country: US (occurrence: None)
  Receive Date: 20140425
  Receipt Date: 20140425
  Transmission Date: 20141212
  Serious: No
  Sender: FDA-Public Use
  Company Number: 1306109

PATIENT
  Age: 52 Year
  Sex: Female

DRUGS (5)
  1. ZELBORAF [Suspect]
     Indication: MALIGNANT MELANOMA
     Dosage: 960 MG (240 MG, 4 IN 1 D), ORAL
     Route: 048
     Dates: start: 201308
  2. DOXEPIN [Concomitant]
  3. FLUOXETINE (FLUOXETINE HYDROCHLORIDE) [Concomitant]
  4. SEROQUEL (QUETIAPINE FUMARATE) [Concomitant]
  5. SAPHRIS [Concomitant]

REACTIONS (3)
  - Swelling face [None]
  - Vision blurred [None]
  - Hot flush [None]
